FAERS Safety Report 15654949 (Version 2)
Quarter: 2018Q4

REPORT INFORMATION
  Report Type: Spontaneous
  Country: US (occurrence: US)
  Receive Date: 20181126
  Receipt Date: 20181205
  Transmission Date: 20190205
  Serious: No
  Sender: FDA-Public Use
  Company Number: US-TEVA-2018-US-980769

PATIENT
  Sex: Male
  Weight: 97 kg

DRUGS (1)
  1. CINQAIR [Suspect]
     Active Substance: RESLIZUMAB
     Indication: ASTHMA
     Dosage: .3571 MILLIGRAM/MILLILITERS DAILY; 291 MG, MONTHLY
     Route: 042
     Dates: start: 20181114

REACTIONS (1)
  - Upper respiratory tract infection [Unknown]
